FAERS Safety Report 25139234 (Version 1)
Quarter: 2025Q1

REPORT INFORMATION
  Report Type: Spontaneous
  Country: US (occurrence: US)
  Receive Date: 20250331
  Receipt Date: 20250331
  Transmission Date: 20250408
  Serious: No
  Sender: ROCHE
  Company Number: US-ROCHE-10000236091

PATIENT
  Age: 58 Year
  Sex: Female

DRUGS (4)
  1. GAZYVA [Suspect]
     Active Substance: OBINUTUZUMAB
     Indication: Chronic lymphocytic leukaemia
     Route: 065
  2. MONTELUKAST [Concomitant]
     Active Substance: MONTELUKAST
  3. BENADRYL [Concomitant]
     Active Substance: DIPHENHYDRAMINE HYDROCHLORIDE
  4. PEPCID [Concomitant]
     Active Substance: FAMOTIDINE

REACTIONS (1)
  - Rash [Unknown]
